FAERS Safety Report 4878235-3 (Version None)
Quarter: 2006Q1

REPORT INFORMATION
  Report Type: 
  Country: None (occurrence: None)
  Receive Date: 20060111
  Receipt Date: 20060106
  Transmission Date: 20060701
  Serious: Yes (Hospitalization)
  Sender: FDA-Public Use
  Company Number: FR-MERCK-0601FRA00022

PATIENT
  Age: 85 Year
  Sex: Female

DRUGS (6)
  1. FOSAMAX [Suspect]
     Indication: OSTEOPOROSIS
     Route: 048
     Dates: start: 20050915, end: 20051013
  2. CALCIUM CARBONATE [Suspect]
     Indication: OSTEOPOROSIS
     Route: 048
     Dates: start: 20050915
  3. RAMIPRIL [Concomitant]
     Indication: HYPERTENSION
     Route: 048
  4. FLUOXETINE [Concomitant]
     Indication: DEPRESSION
     Route: 048
     Dates: end: 20051025
  5. AMIODARONE HYDROCHLORIDE [Concomitant]
     Indication: TACHYCARDIA
     Route: 048
  6. PRAVASTATIN SODIUM [Concomitant]
     Route: 048
     Dates: end: 20051018

REACTIONS (1)
  - HEPATITIS CHOLESTATIC [None]
